FAERS Safety Report 12625413 (Version 2)
Quarter: 2016Q3

REPORT INFORMATION
  Report Type: Spontaneous
  Country: US (occurrence: US)
  Receive Date: 20160805
  Receipt Date: 20160829
  Transmission Date: 20161109
  Serious: Yes (Hospitalization)
  Sender: FDA-Public Use
  Company Number: US-ASTRAZENECA-2016SE82707

PATIENT
  Age: 615 Month
  Sex: Female
  Weight: 88.5 kg

DRUGS (17)
  1. LISINOPRIL. [Suspect]
     Active Substance: LISINOPRIL
     Route: 048
     Dates: start: 20160623
  2. METFORMIN [Concomitant]
     Active Substance: METFORMIN HYDROCHLORIDE
     Route: 048
  3. NITROSTAT [Concomitant]
     Active Substance: NITROGLYCERIN
     Dosage: 0.4MG,1DF, EVERY 5 MINS, AS NEEDED.
     Route: 060
  4. LORAZEPAM. [Concomitant]
     Active Substance: LORAZEPAM
     Dosage: 0.5MG,EVERY EIGHT HOURS, AS NEEDED.
     Route: 048
  5. ASPIRIN. [Concomitant]
     Active Substance: ASPIRIN
     Route: 048
  6. COREG [Concomitant]
     Active Substance: CARVEDILOL
     Route: 048
  7. LASIX [Concomitant]
     Active Substance: FUROSEMIDE
     Route: 048
  8. GLUCAGON. [Concomitant]
     Active Substance: GLUCAGON
     Indication: BLOOD GLUCOSE INCREASED
     Dosage: 1MG, AS NEEDED
     Route: 058
     Dates: start: 20160622
  9. INSULIN LISPRO [Concomitant]
     Active Substance: INSULIN LISPRO
     Indication: BLOOD GLUCOSE INCREASED
     Dosage: 2-14 UNITS, AS NEEDED.
     Route: 058
  10. BRILINTA [Suspect]
     Active Substance: TICAGRELOR
     Route: 048
     Dates: start: 20160622
  11. ATORVASTATIN [Concomitant]
     Active Substance: ATORVASTATIN
     Route: 048
  12. LISINOPRIL. [Suspect]
     Active Substance: LISINOPRIL
     Route: 048
  13. TOPROL XL [Suspect]
     Active Substance: METOPROLOL SUCCINATE
     Route: 048
     Dates: start: 20160624
  14. CYCLOBENZAPINE [Concomitant]
     Route: 048
  15. PAROXETINE. [Concomitant]
     Active Substance: PAROXETINE
     Route: 048
  16. TYLENOL [Concomitant]
     Active Substance: ACETAMINOPHEN
     Indication: HEADACHE
     Route: 048
  17. MECLIZINE [Concomitant]
     Active Substance: MECLIZINE HYDROCHLORIDE
     Route: 048

REACTIONS (10)
  - Cardiac disorder [Unknown]
  - Anxiety [Unknown]
  - Post procedural stroke [Unknown]
  - Pain [Unknown]
  - Myocardial infarction [Unknown]
  - Chest pain [Unknown]
  - Dizziness [Unknown]
  - Adverse event [Unknown]
  - Asthenia [Unknown]
  - Visual impairment [Unknown]

NARRATIVE: CASE EVENT DATE: 201606
